FAERS Safety Report 8156540-5 (Version None)
Quarter: 2012Q1

REPORT INFORMATION
  Report Type: 
  Country: None (occurrence: None)
  Receive Date: 20120222
  Receipt Date: 20120210
  Transmission Date: 20120608
  Serious: Yes (Death, Hospitalization, Other)
  Sender: FDA-Public Use
  Company Number: US-ACTELION-A-US2011-47874

PATIENT

DRUGS (3)
  1. TRACLEER [Suspect]
     Indication: PULMONARY ARTERIAL HYPERTENSION
     Dosage: UNK
     Route: 048
     Dates: start: 20091104
  2. COUMADIN [Concomitant]
  3. REVATIO [Concomitant]

REACTIONS (5)
  - DEATH [None]
  - RENAL FAILURE [None]
  - DIALYSIS [None]
  - CARDIAC FAILURE [None]
  - PULMONARY OEDEMA [None]
